FAERS Safety Report 13823597 (Version 1)
Quarter: 2017Q3

REPORT INFORMATION
  Report Type: Spontaneous
  Country: GB (occurrence: GB)
  Receive Date: 20170802
  Receipt Date: 20170802
  Transmission Date: 20171127
  Serious: Yes (Hospitalization)
  Sender: FDA-Public Use
  Company Number: GB-TORRENT-00015481

PATIENT
  Age: 39 Year
  Sex: Female

DRUGS (7)
  1. COLECALCIFEROL [Concomitant]
     Active Substance: CHOLECALCIFEROL
  2. FERROUS FUMARATE [Concomitant]
     Active Substance: FERROUS FUMARATE
  3. RIGEVIDON [Interacting]
     Active Substance: ETHINYL ESTRADIOL\LEVONORGESTREL
  4. OLIVE OIL [Concomitant]
     Active Substance: OLIVE OIL
  5. LAMOTRIGINE. [Suspect]
     Active Substance: LAMOTRIGINE
  6. CORSODYL [Concomitant]
     Active Substance: CHLORHEXIDINE GLUCONATE
  7. PARACETAMOL [Concomitant]
     Active Substance: ACETAMINOPHEN

REACTIONS (2)
  - Epilepsy [Unknown]
  - Labelled drug-drug interaction medication error [Unknown]

NARRATIVE: CASE EVENT DATE: 201707
